FAERS Safety Report 4779443-2 (Version None)
Quarter: 2005Q3

REPORT INFORMATION
  Report Type: 
  Country: None (occurrence: None)
  Receive Date: 20050923
  Receipt Date: 20050916
  Transmission Date: 20060218
  Serious: Yes (Hospitalization, Other)
  Sender: FDA-Public Use
  Company Number: KII-2005-0018630

PATIENT
  Age: 45 Year
  Sex: Male

DRUGS (5)
  1. OXYCODONE HCL [Suspect]
     Indication: BACK PAIN
     Dosage: ORAL
     Route: 048
  2. METHADONE HCL [Suspect]
     Indication: BACK PAIN
     Dosage: ORAL
     Route: 048
  3. CARISOPRODOL [Suspect]
     Indication: BACK PAIN
     Dosage: ORAL
     Route: 048
  4. BENZODIAZEPINE DERIVATES [Suspect]
     Indication: BACK PAIN
     Dosage: ORAL
     Route: 048
  5. TRICYCLIC ANTIDEPRESSANTS [Suspect]

REACTIONS (7)
  - BLOOD PH DECREASED [None]
  - COMA [None]
  - INTENTIONAL MISUSE [None]
  - MULTIPLE DRUG OVERDOSE [None]
  - RESPIRATORY RATE DECREASED [None]
  - SINUS TACHYCARDIA [None]
  - VOMITING [None]
